FAERS Safety Report 6689557-8 (Version None)
Quarter: 2010Q2

REPORT INFORMATION
  Report Type: 
  Country: None (occurrence: None)
  Receive Date: 20100421
  Receipt Date: 20100412
  Transmission Date: 20101027
  Serious: No
  Sender: FDA-Public Use
  Company Number: US-BIOGENIDEC-2010BI012751

PATIENT
  Sex: Female

DRUGS (2)
  1. TYSABRI [Suspect]
     Indication: MULTIPLE SCLEROSIS
     Route: 042
     Dates: start: 20080829, end: 20091222
  2. TYSABRI [Suspect]
     Route: 042
     Dates: start: 20100201

REACTIONS (5)
  - BRONCHITIS [None]
  - CHILLS [None]
  - DECREASED IMMUNE RESPONSIVENESS [None]
  - GASTROENTERITIS VIRAL [None]
  - PHARYNGITIS STREPTOCOCCAL [None]
